FAERS Safety Report 8499221-0 (Version None)
Quarter: 2012Q3

REPORT INFORMATION
  Report Type: 
  Country: None (occurrence: None)
  Receive Date: 20120710
  Receipt Date: 20120705
  Transmission Date: 20120928
  Serious: Yes (Hospitalization)
  Sender: FDA-Public Use
  Company Number: PHHY2012CA053895

PATIENT
  Sex: Female

DRUGS (5)
  1. HALDOL [Concomitant]
     Dosage: 2 MG, QID
  2. VALPROATE SODIUM [Concomitant]
     Dosage: 1200 MG
  3. ATIVAN [Concomitant]
     Dosage: 1 MG
  4. CLOZARIL [Suspect]
     Indication: SCHIZOPHRENIA
     Dosage: 325 MG
     Route: 048
     Dates: start: 20120419
  5. HALDOL [Concomitant]
     Dosage: 1 MG,TID

REACTIONS (2)
  - FALL [None]
  - HIP FRACTURE [None]
